FAERS Safety Report 4879073-8 (Version None)
Quarter: 2005Q4

REPORT INFORMATION
  Report Type: 
  Country: None (occurrence: None)
  Receive Date: 20051209
  Receipt Date: 20050526
  Transmission Date: 20060501
  Serious: Yes (Other)
  Sender: FDA-Public Use
  Company Number: USA-2003-0003886

PATIENT
  Age: 40 Year
  Sex: Male
  Weight: 92.5 kg

DRUGS (7)
  1. OXYCONTIN [Suspect]
     Indication: PAIN
     Dosage: 20 MG, BID, ORAL
     Route: 048
     Dates: start: 20000127
  2. OXYCODONE HCL [Suspect]
     Indication: PAIN
     Dosage: 5 MG, Q 4H PRN, ORAL
     Route: 048
     Dates: start: 20000323
  3. VIOXX [Concomitant]
  4. VALIUM [Concomitant]
  5. CARBATROL [Concomitant]
  6. ADIPEX-P [Concomitant]
  7. XANAX [Concomitant]

REACTIONS (16)
  - DEPRESSION [None]
  - DIARRHOEA [None]
  - DRUG DEPENDENCE [None]
  - DRUG INEFFECTIVE [None]
  - DRUG WITHDRAWAL SYNDROME [None]
  - HEADACHE [None]
  - HYPERHIDROSIS [None]
  - INSOMNIA [None]
  - IRRITABILITY [None]
  - NAUSEA [None]
  - NERVOUSNESS [None]
  - PAIN [None]
  - SINUSITIS [None]
  - TREMOR [None]
  - VOMITING [None]
  - WEIGHT INCREASED [None]
